FAERS Safety Report 19924666 (Version 4)
Quarter: 2022Q1

REPORT INFORMATION
  Report Type: Report from Study
  Country: US (occurrence: US)
  Receive Date: 20211006
  Receipt Date: 20220119
  Transmission Date: 20220423
  Serious: No
  Sender: FDA-Public Use
  Company Number: NVSC2021US227818

PATIENT
  Sex: Male

DRUGS (1)
  1. COSENTYX [Suspect]
     Active Substance: SECUKINUMAB
     Indication: Psoriasis
     Dosage: 300 MG, QMO (ONCE EVERY 4 WEEKS)
     Route: 058
     Dates: start: 202108

REACTIONS (3)
  - Arthropathy [Unknown]
  - Injection site pruritus [Unknown]
  - Injection site erythema [Unknown]
